FAERS Safety Report 18343428 (Version 1)
Quarter: 2020Q4

REPORT INFORMATION
  Report Type: Spontaneous
  Country: US (occurrence: US)
  Receive Date: 20201002
  Receipt Date: 20201002
  Transmission Date: 20210113
  Serious: Yes (Hospitalization)
  Sender: FDA-Public Use
  Company Number: None

PATIENT
  Age: 53 Year
  Sex: Male

DRUGS (1)
  1. NIVOLUMAB (NIVOLUMAB 10MG/ML INJ, SOLN) [Suspect]
     Active Substance: NIVOLUMAB
     Dosage: ?          OTHER FREQUENCY:OTHER;OTHER ROUTE:IV?
     Dates: start: 20200417, end: 20200605

REACTIONS (4)
  - Wheezing [None]
  - Hypersensitivity pneumonitis [None]
  - Pyrexia [None]
  - Cough [None]

NARRATIVE: CASE EVENT DATE: 20200616
